FAERS Safety Report 5566395-0 (Version None)
Quarter: 2007Q4

REPORT INFORMATION
  Report Type: 
  Country: None (occurrence: None)
  Receive Date: 20071219
  Receipt Date: 20071210
  Transmission Date: 20080405
  Serious: Yes (Disabling)
  Sender: FDA-Public Use
  Company Number: CH-BAYER-200717866GPV

PATIENT
  Age: 59 Year
  Sex: Male

DRUGS (1)
  1. CIPROXIN [Suspect]
     Indication: URINARY TRACT INFECTION
     Dosage: TOTAL DAILY DOSE: 1000 MG
     Route: 048
     Dates: start: 20010427, end: 20010428

REACTIONS (1)
  - ACUTE PSYCHOSIS [None]
